FAERS Safety Report 4272211-X (Version None)
Quarter: 2004Q1

REPORT INFORMATION
  Report Type: 
  Country: None (occurrence: None)
  Receive Date: 20040115
  Receipt Date: 20010906
  Transmission Date: 20041129
  Serious: Yes (Other)
  Sender: FDA-Public Use
  Company Number: 10980431

PATIENT
  Age: 70 Year
  Sex: Male

DRUGS (8)
  1. ATORVASTATIN [Suspect]
     Dosage: MOST RECENT DOSE PRIOR TO EVENT WAS 07-AUG-2001.
     Route: 048
     Dates: start: 20010725
  2. GATIFLOXACIN [Suspect]
     Dosage: MOST RECENT DOSE PRIOR TO EVENT WAS 07-AUG-2001.
     Route: 048
     Dates: start: 20010808, end: 20010821
  3. HUMULIN 70/30 [Concomitant]
     Dosage: DOSAGE FORM = UNITS
     Route: 058
     Dates: start: 19890101
  4. PLAVIX [Concomitant]
     Route: 048
     Dates: start: 20010725
  5. METOPROLOL [Concomitant]
     Dates: start: 20010725
  6. FLOMAX [Concomitant]
     Route: 048
     Dates: start: 20010725
  7. LEVAQUIN [Concomitant]
     Route: 048
     Dates: start: 20010725, end: 20010801
  8. ASPIRIN [Concomitant]
     Route: 048
     Dates: start: 20010725

REACTIONS (1)
  - DIABETES MELLITUS INADEQUATE CONTROL [None]
